FAERS Safety Report 10170819 (Version 1)
Quarter: 2014Q2

REPORT INFORMATION
  Report Type: Report from Study
  Country: US (occurrence: US)
  Receive Date: 20140514
  Receipt Date: 20140514
  Transmission Date: 20141212
  Serious: Yes (Other)
  Sender: FDA-Public Use
  Company Number: US-JNJFOC-20140505384

PATIENT
  Sex: Male
  Weight: 81.65 kg

DRUGS (13)
  1. REMICADE [Suspect]
     Indication: CROHN^S DISEASE
     Route: 042
     Dates: start: 2013, end: 2014
  2. LOPERAMIDE [Concomitant]
     Indication: CROHN^S DISEASE
     Route: 048
  3. DICYCLOMINE [Concomitant]
     Indication: CROHN^S DISEASE
     Dosage: 20MG
     Route: 048
  4. OMEPRAZOLE [Concomitant]
     Indication: CROHN^S DISEASE
     Route: 048
  5. CHLORDIAZEPOXIDE [Concomitant]
     Indication: CROHN^S DISEASE
     Route: 048
  6. METOPROLOL [Concomitant]
     Indication: CARDIAC DISORDER
     Route: 048
  7. FUROSEMIDE [Concomitant]
     Indication: DIURETIC THERAPY
     Route: 048
  8. LORATADINE [Concomitant]
     Indication: MULTIPLE ALLERGIES
     Route: 048
  9. POTASSIUM [Concomitant]
     Route: 048
  10. IRON [Concomitant]
     Route: 048
  11. MULTIVITAMINS [Concomitant]
     Route: 048
  12. ZOLPIDEM [Concomitant]
     Indication: SLEEP DISORDER
     Route: 048
  13. ANTACID EXTRA STRENGTH [Concomitant]
     Dosage: THREE AT NIGHT
     Route: 048

REACTIONS (3)
  - Oedema peripheral [Unknown]
  - Chest pain [Unknown]
  - Pulmonary oedema [Unknown]
